FAERS Safety Report 6497304-8 (Version None)
Quarter: 2009Q4

REPORT INFORMATION
  Report Type: 
  Country: None (occurrence: None)
  Receive Date: 20091215
  Receipt Date: 20091014
  Transmission Date: 20100525
  Serious: No
  Sender: FDA-Public Use
  Company Number: A0804745A

PATIENT
  Age: 27 Year
  Sex: Female
  Weight: 90.9 kg

DRUGS (2)
  1. AVODART [Suspect]
     Indication: DRUG USE FOR UNKNOWN INDICATION
     Dosage: .5MG UNKNOWN
     Route: 062
  2. VITAMIN AND MINERAL PRENATAL SUPPLEMENT W/ FOLIC ACID CAP [Concomitant]
     Indication: PREGNANCY
     Dosage: 1TAB PER DAY
     Dates: start: 20090301

REACTIONS (1)
  - DRUG EXPOSURE DURING PREGNANCY [None]
